FAERS Safety Report 9645269 (Version 2)
Quarter: 2013Q4

REPORT INFORMATION
  Report Type: Spontaneous
  Country: US (occurrence: US)
  Receive Date: 20131025
  Receipt Date: 20131105
  Transmission Date: 20140711
  Serious: Yes (Hospitalization)
  Sender: FDA-Public Use
  Company Number: US-VIROPHARMA INCORPORATED-20131016CINRY5170

PATIENT
  Age: 41 Year
  Sex: Female
  Weight: 134 kg

DRUGS (3)
  1. CINRYZE (C1 ESTERASE INHIBITOR (HUMAN)) [Suspect]
     Indication: HEREDITARY ANGIOEDEMA
  2. CINRYZE (C1 ESTERASE INHIBITOR (HUMAN)) [Suspect]
     Indication: PROPHYLAXIS
  3. DANAZOL [Concomitant]
     Indication: HEREDITARY ANGIOEDEMA
     Route: 048

REACTIONS (3)
  - Hereditary angioedema [Recovered/Resolved]
  - Jugular vein thrombosis [Recovering/Resolving]
  - Off label use [Recovered/Resolved]
